FAERS Safety Report 18130816 (Version 1)
Quarter: 2020Q3

REPORT INFORMATION
  Report Type: Spontaneous
  Country: CN (occurrence: CN)
  Receive Date: 20200810
  Receipt Date: 20200810
  Transmission Date: 20201103
  Serious: Yes (Hospitalization)
  Sender: FDA-Public Use
  Company Number: CN-BAYER-2020-156525

PATIENT
  Age: 71 Year
  Sex: Male
  Weight: 74 kg

DRUGS (1)
  1. GLUCOBAY [Suspect]
     Active Substance: ACARBOSE
     Indication: DIABETES MELLITUS
     Dosage: 500 MG, TID
     Route: 048
     Dates: start: 20200701, end: 20200724

REACTIONS (6)
  - Hypertension [None]
  - Abdominal distension [None]
  - Occult blood positive [None]
  - Nausea [None]
  - Dizziness [None]
  - Constipation [Recovering/Resolving]

NARRATIVE: CASE EVENT DATE: 20200708
